FAERS Safety Report 9008454 (Version 2)
Quarter: 2013Q1

REPORT INFORMATION
  Report Type: Spontaneous
  Country: US (occurrence: US)
  Receive Date: 20130111
  Receipt Date: 20130201
  Transmission Date: 20140127
  Serious: No
  Sender: FDA-Public Use
  Company Number: US-PFIZER INC-2013011197

PATIENT
  Age: 93 Year
  Sex: Male
  Weight: 59 kg

DRUGS (1)
  1. XALATAN [Suspect]
     Dosage: 1 GTT EACH EYE, DAILY AT NIGHT
     Route: 047

REACTIONS (1)
  - Hearing impaired [Not Recovered/Not Resolved]
